FAERS Safety Report 25409552 (Version 1)
Quarter: 2025Q2

REPORT INFORMATION
  Report Type: Spontaneous
  Country: US (occurrence: US)
  Receive Date: 20250607
  Receipt Date: 20250607
  Transmission Date: 20250716
  Serious: No
  Sender: RIGEL PHARMACEUTICALS
  Company Number: US-RIGEL Pharmaceuticals, INC-20240800104

PATIENT
  Sex: Female

DRUGS (3)
  1. TAVALISSE [Suspect]
     Active Substance: FOSTAMATINIB
     Indication: Immune thrombocytopenia
     Dosage: 100 MG, QD
     Route: 048
     Dates: start: 202201, end: 20240820
  2. TAVALISSE [Suspect]
     Active Substance: FOSTAMATINIB
     Route: 048
     Dates: start: 20240826
  3. TAVALISSE [Suspect]
     Active Substance: FOSTAMATINIB
     Route: 048
     Dates: start: 20240826, end: 20240829

REACTIONS (11)
  - Faeces discoloured [Not Recovered/Not Resolved]
  - COVID-19 [Unknown]
  - Decreased appetite [Recovering/Resolving]
  - Stress [Unknown]
  - Illness [Recovering/Resolving]
  - Sciatica [Unknown]
  - Pain [Unknown]
  - Product prescribing issue [Unknown]
  - Product use issue [Unknown]
  - Fatigue [Recovering/Resolving]
  - Diarrhoea [Recovering/Resolving]

NARRATIVE: CASE EVENT DATE: 20210101
